FAERS Safety Report 7579177-5 (Version None)
Quarter: 2011Q2

REPORT INFORMATION
  Report Type: 
  Country: None (occurrence: None)
  Receive Date: 20110628
  Receipt Date: 20110616
  Transmission Date: 20111010
  Serious: Yes (Life-Threatening, Hospitalization, Other)
  Sender: FDA-Public Use
  Company Number: RS-BAYER-2011-045089

PATIENT
  Age: 18 Year
  Sex: Female

DRUGS (1)
  1. ULTRAVIST 370 [Suspect]
     Indication: PRODUCT USED FOR UNKNOWN INDICATION
     Dosage: UNK UNK, ONCE
     Dates: start: 20110524, end: 20110524

REACTIONS (4)
  - BLOOD PRESSURE DECREASED [None]
  - FACE OEDEMA [None]
  - ASPHYXIA [None]
  - GENERALISED ERYTHEMA [None]
